FAERS Safety Report 25345219 (Version 1)
Quarter: 2025Q2

REPORT INFORMATION
  Report Type: Spontaneous
  Country: GB (occurrence: GB)
  Receive Date: 20250522
  Receipt Date: 20250522
  Transmission Date: 20250717
  Serious: Yes (Hospitalization, Other)
  Sender: BAXTER
  Company Number: GB-MLMSERVICE-20250513-PI506662-00150-1

PATIENT
  Age: 55 Year
  Sex: Male

DRUGS (3)
  1. FLUCONAZOLE [Interacting]
     Active Substance: FLUCONAZOLE
     Indication: Candida infection
     Route: 065
  2. FLUCONAZOLE [Interacting]
     Active Substance: FLUCONAZOLE
     Indication: Chorioretinitis
  3. WARFARIN [Interacting]
     Active Substance: WARFARIN
     Route: 065

REACTIONS (5)
  - Intracranial haematoma [Recovered/Resolved]
  - Haemorrhagic transformation stroke [Recovered/Resolved]
  - Embolic stroke [Recovered/Resolved]
  - International normalised ratio increased [Recovered/Resolved]
  - Drug interaction [Recovered/Resolved]
